FAERS Safety Report 5932066-1 (Version None)
Quarter: 2008Q4

REPORT INFORMATION
  Report Type: 
  Country: None (occurrence: None)
  Receive Date: 20081027
  Receipt Date: 20081015
  Transmission Date: 20090506
  Serious: Yes (Hospitalization, Other)
  Sender: FDA-Public Use
  Company Number: AU-PFIZER INC-2008088795

PATIENT
  Sex: Male

DRUGS (12)
  1. SERTRALINE [Suspect]
     Indication: DEPRESSION
     Route: 048
     Dates: start: 20050427, end: 20050502
  2. TELMISARTAN [Suspect]
     Indication: HYPERTENSION
     Route: 048
     Dates: end: 20050502
  3. ACTONEL [Concomitant]
  4. ACETYLSALICYLIC ACID SRT [Concomitant]
  5. CALTRATE [Concomitant]
  6. LATANOPROST [Concomitant]
  7. OROXINE [Concomitant]
  8. OTRIVIN [Concomitant]
  9. PANADEINE [Concomitant]
  10. PROPRANOLOL [Concomitant]
  11. RANITIDINE [Concomitant]
  12. VAGIFEM [Concomitant]

REACTIONS (3)
  - CONFUSIONAL STATE [None]
  - HYPERKALAEMIA [None]
  - HYPONATRAEMIA [None]
